FAERS Safety Report 25037477 (Version 4)
Quarter: 2025Q2

REPORT INFORMATION
  Report Type: Spontaneous
  Country: DE (occurrence: DE)
  Receive Date: 20250304
  Receipt Date: 20250411
  Transmission Date: 20250717
  Serious: Yes (Hospitalization, Other)
  Sender: DEVICE MANUFACTURER
  Company Number: DE-CORZA MEDICAL GMBH-2025-DE-002289

PATIENT

DRUGS (13)
  1. TACHOSIL [Suspect]
     Active Substance: FIBRINOGEN HUMAN\HUMAN THROMBIN
     Indication: Cerebrospinal fluid leakage
     Route: 065
     Dates: start: 20220127
  2. TACHOSIL [Suspect]
     Active Substance: FIBRINOGEN HUMAN\HUMAN THROMBIN
     Indication: Epidural haemorrhage
     Route: 065
     Dates: start: 20220128
  3. TACHOSIL [Suspect]
     Active Substance: FIBRINOGEN HUMAN\HUMAN THROMBIN
     Route: 065
     Dates: start: 20220129
  4. FIBRIN SEALANT NOS [Suspect]
     Active Substance: FIBRINOGEN HUMAN\HUMAN THROMBIN
     Indication: Cerebrospinal fluid leakage
     Route: 065
  5. TISSEEL [Suspect]
     Active Substance: FIBRINOGEN HUMAN\HUMAN THROMBIN
     Indication: Epidural haemorrhage
     Route: 065
     Dates: start: 20220127, end: 20220127
  6. TISSEEL [Suspect]
     Active Substance: FIBRINOGEN HUMAN\HUMAN THROMBIN
     Route: 065
     Dates: start: 20220128
  7. TISSEEL [Suspect]
     Active Substance: FIBRINOGEN HUMAN\HUMAN THROMBIN
     Route: 065
     Dates: start: 20220129
  8. THROMBIN [Suspect]
     Active Substance: THROMBIN
     Indication: Epidural haemorrhage
     Route: 065
     Dates: start: 20220128
  9. CELLULOSE, OXIDIZED [Suspect]
     Active Substance: CELLULOSE, OXIDIZED
     Indication: Epidural haemorrhage
     Route: 065
     Dates: start: 20220129
  10. ENOXAPARIN [Concomitant]
     Active Substance: ENOXAPARIN
     Indication: Product used for unknown indication
     Dosage: 4000 IU, QD ONCE IN EVENING
     Route: 065
  11. LEVOTHYROXINE SODIUM [Concomitant]
     Active Substance: LEVOTHYROXINE SODIUM
     Indication: Product used for unknown indication
     Route: 065
  12. METAMIZOL [Concomitant]
     Active Substance: METAMIZOLE SODIUM
     Indication: Product used for unknown indication
     Route: 065
  13. PANTOPRAZOLE SODIUM [Concomitant]
     Active Substance: PANTOPRAZOLE SODIUM
     Indication: Product used for unknown indication
     Dosage: 40 MG, QD, ONCE  IN THE MORNING
     Route: 065

REACTIONS (28)
  - Product use issue [Unknown]
  - Hemiparesis [Unknown]
  - Paraplegia [Not Recovered/Not Resolved]
  - Cerebrospinal fluid leakage [Recovered/Resolved]
  - Nervous system disorder [Not Recovered/Not Resolved]
  - Pain [Not Recovered/Not Resolved]
  - Monoplegia [Recovering/Resolving]
  - Dysstasia [Not Recovered/Not Resolved]
  - Gait disturbance [Recovering/Resolving]
  - Pain in extremity [Recovering/Resolving]
  - Hypoaesthesia [Not Recovered/Not Resolved]
  - Hyperreflexia [Not Recovered/Not Resolved]
  - Sensory loss [Not Recovered/Not Resolved]
  - Muscular weakness [Not Recovered/Not Resolved]
  - Sciatica [Not Recovered/Not Resolved]
  - Mobility decreased [Recovering/Resolving]
  - Loss of control of legs [Not Recovered/Not Resolved]
  - Hypoaesthesia [Not Recovered/Not Resolved]
  - Muscle twitching [Not Recovered/Not Resolved]
  - Urine output decreased [Unknown]
  - Cauda equina syndrome [Not Recovered/Not Resolved]
  - Atonic urinary bladder [Not Recovered/Not Resolved]
  - Urinary retention [Not Recovered/Not Resolved]
  - Failed back surgery syndrome [Not Recovered/Not Resolved]
  - Frequent bowel movements [Unknown]
  - Abnormal faeces [Unknown]
  - Anal sphincter atony [Unknown]
  - Procedural pain [Unknown]

NARRATIVE: CASE EVENT DATE: 20220102
